FAERS Safety Report 6738392-0 (Version None)
Quarter: 2010Q2

REPORT INFORMATION
  Report Type: 
  Country: None (occurrence: None)
  Receive Date: 20100520
  Receipt Date: 20100507
  Transmission Date: 20101027
  Serious: Yes (Life-Threatening, Hospitalization)
  Sender: FDA-Public Use
  Company Number: 2010AP000954

PATIENT
  Age: 49 Year
  Sex: Female

DRUGS (5)
  1. RISPERIDONE [Suspect]
  2. CLOZARIL [Concomitant]
     Indication: SCHIZOPHRENIA
     Dates: start: 20060422
  3. MIRTAZAPINE [Concomitant]
  4. HALOPERIDOL [Concomitant]
  5. LITHIUM [Concomitant]

REACTIONS (4)
  - BLOOD CREATINE PHOSPHOKINASE INCREASED [None]
  - MALAISE [None]
  - MENTAL DISORDER [None]
  - NEUROLEPTIC MALIGNANT SYNDROME [None]
